FAERS Safety Report 15114167 (Version 1)
Quarter: 2018Q3

REPORT INFORMATION
  Report Type: Report from Study
  Country: GB (occurrence: GB)
  Receive Date: 20180706
  Receipt Date: 20180706
  Transmission Date: 20181010
  Serious: Yes (Other)
  Sender: FDA-Public Use
  Company Number: GB-AUROBINDO-AUR-APL-2018-033804

PATIENT
  Age: 15 Year

DRUGS (4)
  1. VORICONAZOLE. [Suspect]
     Active Substance: VORICONAZOLE
     Indication: HAEMATOPOIETIC STEM CELL MOBILISATION
     Route: 065
  2. FLUDARABINE [Suspect]
     Active Substance: FLUDARABINE PHOSPHATE
     Indication: HAEMATOPOIETIC STEM CELL MOBILISATION
     Dosage: 160 MILLIGRAM/SQ. METER
     Route: 065
  3. ALEMTUZUMAB [Suspect]
     Active Substance: ALEMTUZUMAB
     Indication: HAEMATOPOIETIC STEM CELL MOBILISATION
     Dosage: 1 MILLIGRAM/KILOGRAM
     Route: 065
  4. BUSULFAN. [Suspect]
     Active Substance: BUSULFAN
     Indication: HAEMATOPOIETIC STEM CELL MOBILISATION
     Dosage: 12.8 MILLIGRAM/KILOGRAM
     Route: 065

REACTIONS (4)
  - Actinic keratosis [Unknown]
  - Neoplasm malignant [Unknown]
  - Squamous cell carcinoma [Unknown]
  - Skin disorder [Unknown]
